FAERS Safety Report 12545883 (Version 2)
Quarter: 2017Q3

REPORT INFORMATION
  Report Type: Spontaneous
  Country: US (occurrence: US)
  Receive Date: 20160711
  Receipt Date: 20170707
  Transmission Date: 20171127
  Serious: No
  Sender: FDA-Public Use
  Company Number: US-JNJFOC-20160621807

PATIENT
  Sex: Male

DRUGS (7)
  1. RISPERIDONE. [Suspect]
     Active Substance: RISPERIDONE
     Indication: PRODUCT USED FOR UNKNOWN INDICATION
     Route: 048
  2. RISPERDAL [Suspect]
     Active Substance: RISPERIDONE
     Indication: PSYCHOTIC DISORDER
     Dosage: 1 MG, 2MG, 3MG
     Route: 048
     Dates: start: 2008, end: 2014
  3. INVEGA [Suspect]
     Active Substance: PALIPERIDONE
     Indication: DEPRESSION
     Dosage: 3 MG, 6 MG
     Route: 048
     Dates: start: 2013, end: 2014
  4. RISPERDAL [Suspect]
     Active Substance: RISPERIDONE
     Indication: MENTAL IMPAIRMENT
     Dosage: 1 MG, 2MG, 3MG
     Route: 048
     Dates: start: 2008, end: 2014
  5. INVEGA [Suspect]
     Active Substance: PALIPERIDONE
     Indication: MENTAL IMPAIRMENT
     Dosage: 3 MG, 6 MG
     Route: 048
     Dates: start: 2013, end: 2014
  6. RISPERDAL [Suspect]
     Active Substance: RISPERIDONE
     Indication: DEPRESSION
     Dosage: 1 MG, 2MG, 3MG
     Route: 048
     Dates: start: 2008, end: 2014
  7. INVEGA [Suspect]
     Active Substance: PALIPERIDONE
     Indication: PSYCHOTIC DISORDER
     Dosage: 3 MG, 6 MG
     Route: 048
     Dates: start: 2013, end: 2014

REACTIONS (2)
  - Hyperglycaemia [Unknown]
  - Gynaecomastia [Unknown]

NARRATIVE: CASE EVENT DATE: 2012
